FAERS Safety Report 8220804-7 (Version None)
Quarter: 2012Q1

REPORT INFORMATION
  Report Type: 
  Country: None (occurrence: None)
  Receive Date: 20120319
  Receipt Date: 20120312
  Transmission Date: 20120608
  Serious: Yes (Hospitalization)
  Sender: FDA-Public Use
  Company Number: JP-VERTEX PHARMACEUTICALS INC.-AE-2012-003622

PATIENT
  Age: 67 Year
  Sex: Female

DRUGS (13)
  1. ALLEGRA [Concomitant]
     Route: 048
  2. TELAVIC (TELAPREVIR) [Suspect]
     Route: 048
     Dates: start: 20120221, end: 20120301
  3. VOLTAREN [Concomitant]
     Route: 054
  4. RIBAVIRIN [Concomitant]
     Route: 048
     Dates: start: 20120208, end: 20120220
  5. TOUGHMAC E [Concomitant]
     Route: 048
  6. CLOBETASOL PROPIONATE [Concomitant]
     Route: 061
  7. PEGINTERFERON [Concomitant]
     Indication: HEPATITIS C
     Route: 058
     Dates: start: 20120124, end: 20120224
  8. MOTILIUM [Concomitant]
     Route: 048
  9. TELAVIC (TELAPREVIR) [Suspect]
     Indication: HEPATITIS C
     Route: 048
     Dates: start: 20120124, end: 20120130
  10. RIBAVIRIN [Concomitant]
     Indication: HEPATITIS C
     Route: 048
     Dates: start: 20120124, end: 20120207
  11. RIBAVIRIN [Concomitant]
     Route: 048
     Dates: start: 20120221, end: 20120301
  12. RABEPRAZOLE SODIUM [Concomitant]
     Route: 048
  13. TELAVIC (TELAPREVIR) [Suspect]
     Route: 048
     Dates: start: 20120131, end: 20120220

REACTIONS (2)
  - DECREASED APPETITE [None]
  - ANAEMIA [None]
